FAERS Safety Report 5308020-X (Version None)
Quarter: 2007Q1

REPORT INFORMATION
  Report Type: 
  Country: None (occurrence: None)
  Receive Date: 20070130
  Receipt Date: 20051212
  Transmission Date: 20070707
  Serious: Yes (Other)
  Sender: FDA-Public Use
  Company Number: 425835

PATIENT
  Age: 54 Year
  Sex: Male

DRUGS (3)
  1. COPEGUS [Suspect]
     Indication: HEPATITIS C
     Dates: start: 20041015, end: 20050912
  2. PEGASYS [Suspect]
     Indication: HEPATITIS C
     Dates: start: 20041015, end: 20050912
  3. PROCRIT [Suspect]
     Indication: ANAEMIA OF CHRONIC DISEASE
     Dosage: 2 PER WEEK
     Dates: start: 20040815

REACTIONS (1)
  - HAEMOGLOBIN DECREASED [None]
